FAERS Safety Report 5460469-0 (Version None)
Quarter: 2007Q3

REPORT INFORMATION
  Report Type: 
  Country: None (occurrence: None)
  Receive Date: 20070919
  Receipt Date: 20070917
  Transmission Date: 20080115
  Serious: Yes (Hospitalization)
  Sender: FDA-Public Use
  Company Number: FR-SHR-FR-2007-034959

PATIENT
  Age: 87 Year
  Sex: Female

DRUGS (2)
  1. SOTALOL HYDROCHLORIDE [Suspect]
     Indication: CARDIAC FAILURE
     Dosage: UNK, UNK
     Route: 048
     Dates: start: 20070129
  2. DIHYDROERGOCRISTINE [Suspect]
     Indication: CARDIAC FAILURE
     Dosage: UNK, UNK
     Dates: start: 20070129

REACTIONS (2)
  - HALLUCINATION, AUDITORY [None]
  - HALLUCINATION, VISUAL [None]
